FAERS Safety Report 14720354 (Version 2)
Quarter: 2018Q2

REPORT INFORMATION
  Report Type: Spontaneous
  Country: US (occurrence: US)
  Receive Date: 20180405
  Receipt Date: 20180409
  Transmission Date: 20180711
  Serious: No
  Sender: FDA-Public Use
  Company Number: US-PFIZER INC-2018137485

PATIENT
  Age: 62 Year
  Sex: Female
  Weight: 95.25 kg

DRUGS (1)
  1. NEURONTIN [Suspect]
     Active Substance: GABAPENTIN
     Dosage: UNK

REACTIONS (4)
  - Thinking abnormal [Unknown]
  - Somnolence [Unknown]
  - Memory impairment [Unknown]
  - Feeling abnormal [Unknown]
